FAERS Safety Report 5967548-X (Version None)
Quarter: 2008Q4

REPORT INFORMATION
  Report Type: 
  Country: None (occurrence: None)
  Receive Date: 20081125
  Receipt Date: 20081114
  Transmission Date: 20090506
  Serious: Yes (Hospitalization, Other)
  Sender: FDA-Public Use
  Company Number: US-PFIZER INC-2008097225

PATIENT
  Age: 46 Year
  Sex: Male

DRUGS (6)
  1. DILANTIN [Suspect]
  2. PEGINTERFERON ALFA-2B [Suspect]
     Indication: HEPATITIS C
     Route: 058
     Dates: start: 20080617
  3. PEGINTERFERON ALFA-2B [Suspect]
     Route: 058
  4. REBETOL [Suspect]
     Indication: HEPATITIS C
     Route: 048
     Dates: start: 20080617
  5. REBETOL [Suspect]
     Route: 048
  6. PLAVIX [Suspect]
     Indication: CARDIAC DISORDER

REACTIONS (4)
  - CHEST PAIN [None]
  - EPISTAXIS [None]
  - PNEUMONIA [None]
  - TOOTH DECALCIFICATION [None]
